FAERS Safety Report 8179414-2 (Version None)
Quarter: 2012Q1

REPORT INFORMATION
  Report Type: 
  Country: None (occurrence: None)
  Receive Date: 20120229
  Receipt Date: 20120229
  Transmission Date: 20120608
  Serious: No
  Sender: FDA-Public Use
  Company Number: None

PATIENT
  Sex: Female
  Weight: 54.4316 kg

DRUGS (1)
  1. CLARITHROMYCIN [Suspect]
     Indication: SINUSITIS
     Dosage: ONE TABLET 2X DAILY ORAL
     Route: 048
     Dates: start: 20120202, end: 20120208

REACTIONS (14)
  - PALPITATIONS [None]
  - RENAL PAIN [None]
  - HEADACHE [None]
  - DYSPHONIA [None]
  - CHEST PAIN [None]
  - PERIANAL ERYTHEMA [None]
  - MIDDLE INSOMNIA [None]
  - ABDOMINAL DISCOMFORT [None]
  - TINNITUS [None]
  - PROCTALGIA [None]
  - HEART RATE INCREASED [None]
  - NIGHT SWEATS [None]
  - BACK PAIN [None]
  - DYSPNOEA [None]
